FAERS Safety Report 21763151 (Version 2)
Quarter: 2022Q4

REPORT INFORMATION
  Report Type: Spontaneous
  Country: US (occurrence: US)
  Receive Date: 20221221
  Receipt Date: 20221227
  Transmission Date: 20230113
  Serious: No
  Sender: FDA-Public Use
  Company Number: US-PFIZER INC-202201381002

PATIENT
  Age: 85 Year
  Sex: Female
  Weight: 65.76 kg

DRUGS (3)
  1. PAXLOVID [Suspect]
     Active Substance: NIRMATRELVIR\RITONAVIR
     Indication: COVID-19 treatment
     Dosage: UNK
  2. LORAZEPAM [Concomitant]
     Active Substance: LORAZEPAM
     Indication: Anxiety
     Dosage: 1 MG, 1X/DAY (AT NIGHT)
  3. PIROXICAM [Concomitant]
     Active Substance: PIROXICAM
     Indication: Anxiety
     Dosage: 10 MG, 1X/DAY (IN THE MORNING)

REACTIONS (3)
  - Hyperhidrosis [Unknown]
  - Feeling cold [Unknown]
  - Fear of death [Unknown]
